FAERS Safety Report 24685375 (Version 2)
Quarter: 2024Q4

REPORT INFORMATION
  Report Type: Spontaneous
  Country: AR (occurrence: AR)
  Receive Date: 20241202
  Receipt Date: 20241204
  Transmission Date: 20250115
  Serious: Yes (Hospitalization)
  Sender: MYLAN
  Company Number: AR-MYLANLABS-2024M1107178

PATIENT
  Sex: Female

DRUGS (6)
  1. CLOZAPINE [Suspect]
     Active Substance: CLOZAPINE
     Indication: Product used for unknown indication
     Dosage: UNK
     Route: 065
     Dates: start: 20240911
  2. CLOZAPINE [Suspect]
     Active Substance: CLOZAPINE
     Dosage: 50 MILLIGRAM, QD (50MG/DAY)
     Route: 065
     Dates: start: 202411
  3. LAMOTRIGINE [Concomitant]
     Active Substance: LAMOTRIGINE
     Dosage: 1 DOSAGE FORM (200MG X 1)
     Route: 065
     Dates: start: 202411
  4. SERTRALINE [Concomitant]
     Active Substance: SERTRALINE HYDROCHLORIDE
     Dosage: 2 DOSAGE FORM (100MG X 2)
     Route: 065
     Dates: start: 202411
  5. QUETIAPINE [Concomitant]
     Active Substance: QUETIAPINE
     Dosage: 1 DOSAGE FORM (300MG X 1)
     Route: 065
     Dates: start: 202411
  6. LORAZEPAM [Concomitant]
     Active Substance: LORAZEPAM
     Dosage: 1.5 DOSAGE FORM (2.5MG X 1 AND 1/2)
     Route: 065
     Dates: start: 202411

REACTIONS (3)
  - Suicidal ideation [Unknown]
  - Psychiatric decompensation [Unknown]
  - Treatment noncompliance [Unknown]
